FAERS Safety Report 13922967 (Version 1)
Quarter: 2017Q3

REPORT INFORMATION
  Report Type: Spontaneous
  Country: US (occurrence: US)
  Receive Date: 20170830
  Receipt Date: 20170830
  Transmission Date: 20171127
  Serious: No
  Sender: FDA-Public Use
  Company Number: US-AMGEN-USASP2017129255

PATIENT
  Sex: Female

DRUGS (3)
  1. MTX [Suspect]
     Active Substance: METHOTREXATE SODIUM
     Indication: PRODUCT USED FOR UNKNOWN INDICATION
     Dosage: UNK
     Route: 065
  2. ENBREL [Suspect]
     Active Substance: ETANERCEPT
     Indication: PRODUCT USED FOR UNKNOWN INDICATION
     Dosage: UNK
     Route: 065
  3. XELJANZ [Concomitant]
     Active Substance: TOFACITINIB CITRATE
     Dosage: 5 MG, BID
     Route: 065

REACTIONS (10)
  - Hand deformity [Unknown]
  - Drug effect decreased [Unknown]
  - Foot deformity [Unknown]
  - Joint swelling [Unknown]
  - Pain in extremity [Unknown]
  - Peripheral swelling [Unknown]
  - Joint range of motion decreased [Unknown]
  - Nodal osteoarthritis [Unknown]
  - Joint dislocation [Unknown]
  - Arthralgia [Unknown]
